FAERS Safety Report 24717758 (Version 1)
Quarter: 2024Q4

REPORT INFORMATION
  Report Type: Spontaneous
  Country: IT (occurrence: IT)
  Receive Date: 20241210
  Receipt Date: 20241210
  Transmission Date: 20250115
  Serious: Yes (Hospitalization)
  Sender: FRESENIUS KABI
  Company Number: None

PATIENT
  Age: 68 Year
  Sex: Male
  Weight: 70 kg

DRUGS (2)
  1. ACETAMINOPHEN [Suspect]
     Active Substance: ACETAMINOPHEN
     Indication: Pyrexia
     Dates: start: 20241118
  2. AUGMENTIN [Suspect]
     Active Substance: AMOXICILLIN\CLAVULANATE POTASSIUM
     Indication: Pyrexia
     Dates: start: 20241118

REACTIONS (4)
  - Dermatitis bullous [Recovering/Resolving]
  - Allergic oedema [Recovering/Resolving]
  - Erythema annulare [Recovering/Resolving]
  - Drug hypersensitivity [Recovering/Resolving]

NARRATIVE: CASE EVENT DATE: 20241118
